FAERS Safety Report 7679602-5 (Version None)
Quarter: 2011Q3

REPORT INFORMATION
  Report Type: 
  Country: None (occurrence: None)
  Receive Date: 20110812
  Receipt Date: 20110809
  Transmission Date: 20111222
  Serious: Yes (Death, Hospitalization)
  Sender: FDA-Public Use
  Company Number: DE-SANOFI-AVENTIS-2011SA044802

PATIENT
  Age: 65 Year
  Sex: Male
  Weight: 112 kg

DRUGS (3)
  1. MARCUMAR [Concomitant]
     Indication: DEEP VEIN THROMBOSIS
     Route: 065
     Dates: start: 20090901
  2. JEVTANA KIT [Suspect]
     Route: 041
     Dates: start: 20110530, end: 20110530
  3. JEVTANA KIT [Suspect]
     Indication: PROSTATE CANCER METASTATIC
     Route: 041
     Dates: start: 20110506, end: 20110506

REACTIONS (2)
  - DYSPNOEA [None]
  - PULMONARY EMBOLISM [None]
